FAERS Safety Report 10567529 (Version 1)
Quarter: 2014Q4

REPORT INFORMATION
  Report Type: Report from Study
  Country: US (occurrence: US)
  Receive Date: 20141106
  Receipt Date: 20141106
  Transmission Date: 20150529
  Serious: Yes (Other)
  Sender: FDA-Public Use
  Company Number: US-BIOGENIDEC-2014BI114686

PATIENT
  Sex: Female

DRUGS (1)
  1. AVONEX [Suspect]
     Active Substance: INTERFERON BETA-1A
     Indication: MULTIPLE SCLEROSIS
     Route: 030

REACTIONS (6)
  - Fall [Recovered/Resolved]
  - Weight loss poor [Not Recovered/Not Resolved]
  - Memory impairment [Not Recovered/Not Resolved]
  - Hip arthroplasty [Unknown]
  - Overweight [Not Recovered/Not Resolved]
  - Muscular weakness [Not Recovered/Not Resolved]
